FAERS Safety Report 6295107-0 (Version None)
Quarter: 2009Q3

REPORT INFORMATION
  Report Type: 
  Country: None (occurrence: None)
  Receive Date: 20090803
  Receipt Date: 20090609
  Transmission Date: 20100115
  Serious: Yes (Other)
  Sender: FDA-Public Use
  Company Number: US-PURDUE-USA-2009-0038821

PATIENT
  Sex: Male
  Weight: 208.62 kg

DRUGS (1)
  1. OXYCONTIN [Suspect]
     Indication: PAIN
     Dosage: 40 MG, TID
     Dates: start: 20021008, end: 20031026

REACTIONS (5)
  - DRUG DEPENDENCE [None]
  - HYPERHIDROSIS [None]
  - TOOTH LOSS [None]
  - TREMOR [None]
  - WEIGHT INCREASED [None]
